FAERS Safety Report 6331606-0 (Version None)
Quarter: 2009Q3

REPORT INFORMATION
  Report Type: 
  Country: None (occurrence: None)
  Receive Date: 20090827
  Receipt Date: 20090814
  Transmission Date: 20100115
  Serious: Yes (Hospitalization, Other)
  Sender: FDA-Public Use
  Company Number: PHEH2007US11220

PATIENT
  Sex: Female

DRUGS (1)
  1. ZELNORM [Suspect]
     Route: 065

REACTIONS (15)
  - ASTHMA [None]
  - CARDIAC DISORDER [None]
  - CARDIAC FAILURE CONGESTIVE [None]
  - CHEST PAIN [None]
  - DIZZINESS [None]
  - DYSPNOEA [None]
  - EPISTAXIS [None]
  - EYE DISORDER [None]
  - GENERAL PHYSICAL CONDITION ABNORMAL [None]
  - HEADACHE [None]
  - LOSS OF CONSCIOUSNESS [None]
  - MALAISE [None]
  - PAIN IN EXTREMITY [None]
  - PARANASAL SINUS HYPERSECRETION [None]
  - VEIN DISORDER [None]
